APPROVED DRUG PRODUCT: ACETAMINOPHEN, CAFFEINE, AND DIHYDROCODEINE BITARTRATE
Active Ingredient: ACETAMINOPHEN; CAFFEINE; DIHYDROCODEINE BITARTRATE
Strength: 356.4MG;30MG;16MG
Dosage Form/Route: CAPSULE;ORAL
Application: A040688 | Product #001
Applicant: WRASER PHARMACEUTICALS LLC
Approved: Apr 3, 2007 | RLD: No | RS: No | Type: DISCN